FAERS Safety Report 15457642 (Version 2)
Quarter: 2019Q3

REPORT INFORMATION
  Report Type: Spontaneous
  Country: PT (occurrence: PT)
  Receive Date: 20181003
  Receipt Date: 20190704
  Transmission Date: 20191004
  Serious: Yes (Hospitalization, Other)
  Sender: FDA-Public Use
  Company Number: PT-BRISTOL-MYERS SQUIBB COMPANY-BMS-2018-088987

PATIENT
  Age: 66 Year
  Sex: Male

DRUGS (5)
  1. VILDAGLIPTIN [Suspect]
     Active Substance: VILDAGLIPTIN
     Indication: TYPE 2 DIABETES MELLITUS
     Dosage: UNK
     Route: 065
  2. INSULIN [Concomitant]
     Active Substance: INSULIN NOS
     Indication: DIABETES MELLITUS MANAGEMENT
     Dosage: UNK
     Route: 065
  3. GLICLAZIDE [Suspect]
     Active Substance: GLICLAZIDE
     Indication: TYPE 2 DIABETES MELLITUS
     Dosage: UNK
     Route: 065
  4. DAPAGLIFLOZIN. [Concomitant]
     Active Substance: DAPAGLIFLOZIN
     Indication: DIABETES MELLITUS MANAGEMENT
     Dosage: UNK
     Route: 065
  5. METFORMIN HYDROCHLORIDE. [Suspect]
     Active Substance: METFORMIN HYDROCHLORIDE
     Indication: TYPE 2 DIABETES MELLITUS
     Dosage: UNK
     Route: 065

REACTIONS (9)
  - Cholecystitis acute [Recovered/Resolved]
  - Abdominal pain [Recovered/Resolved]
  - Nervous system disorder [Recovered/Resolved]
  - Diabetes mellitus inadequate control [Recovered/Resolved]
  - Acetonaemia [Recovered/Resolved]
  - Metabolic acidosis [Recovered/Resolved]
  - White blood cell count increased [Recovered/Resolved]
  - Vomiting [Recovered/Resolved]
  - Ketonuria [Recovered/Resolved]
